FAERS Safety Report 13988610 (Version 1)
Quarter: 2017Q3

REPORT INFORMATION
  Report Type: Spontaneous
  Country: US (occurrence: US)
  Receive Date: 20170919
  Receipt Date: 20170919
  Transmission Date: 20171128
  Serious: No
  Sender: FDA-Public Use
  Company Number: US-009507513-1709USA008742

PATIENT
  Age: 23 Year
  Sex: Male

DRUGS (2)
  1. BELSOMRA [Suspect]
     Active Substance: SUVOREXANT
     Dosage: 2, 10 MG TABLETS
     Route: 048
     Dates: start: 20170915, end: 20170915
  2. BELSOMRA [Suspect]
     Active Substance: SUVOREXANT
     Indication: INSOMNIA
     Dosage: 1 10MG TABLET AFTER WAITING ABOUT 1.5 HOURS, ANOTHER 10 MG TABLET, THEN 3RD TABLET AFTER WAITING 2 H
     Route: 048
     Dates: start: 20170913

REACTIONS (2)
  - Overdose [Unknown]
  - Drug ineffective [Not Recovered/Not Resolved]

NARRATIVE: CASE EVENT DATE: 20170913
